FAERS Safety Report 6863944-7 (Version None)
Quarter: 2010Q3

REPORT INFORMATION
  Report Type: 
  Country: None (occurrence: None)
  Receive Date: 20100721
  Receipt Date: 20080410
  Transmission Date: 20110219
  Serious: No
  Sender: FDA-Public Use
  Company Number: US-PFIZER INC-2008023081

PATIENT
  Sex: Male
  Weight: 97.7 kg

DRUGS (3)
  1. CHANTIX [Suspect]
     Indication: SMOKING CESSATION THERAPY
     Dates: start: 20071226, end: 20080101
  2. GLYBURIDE [Concomitant]
     Indication: DIABETES MELLITUS
  3. METFORMIN [Concomitant]
     Indication: DIABETES MELLITUS

REACTIONS (3)
  - INSOMNIA [None]
  - NAUSEA [None]
  - NIGHTMARE [None]
